FAERS Safety Report 8096973-9 (Version None)
Quarter: 2012Q1

REPORT INFORMATION
  Report Type: 
  Country: None (occurrence: None)
  Receive Date: 20120129
  Receipt Date: 20111107
  Transmission Date: 20120608
  Serious: No
  Sender: FDA-Public Use
  Company Number: US-ABBOTT-11P-163-0843935-00

PATIENT
  Sex: Female
  Weight: 74.91 kg

DRUGS (7)
  1. HUMIRA [Suspect]
     Indication: RHEUMATOID ARTHRITIS
     Route: 058
     Dates: start: 20100101, end: 20100801
  2. LEVOXYL [Concomitant]
     Indication: HYPOTHYROIDISM
  3. TOMAZAPAM [Concomitant]
     Indication: SLEEP DISORDER THERAPY
  4. NAPROXEN (ALEVE) [Concomitant]
     Indication: FIBROMYALGIA
  5. PRILOSEC [Concomitant]
     Indication: GASTROOESOPHAGEAL REFLUX DISEASE
  6. NAPROXEN (ALEVE) [Concomitant]
     Indication: RHEUMATOID ARTHRITIS
  7. PROVENTIL [Concomitant]
     Indication: ASTHMA

REACTIONS (6)
  - ILL-DEFINED DISORDER [None]
  - INJECTION SITE WARMTH [None]
  - GASTRIC DISORDER [None]
  - PLATELET COUNT INCREASED [None]
  - INJECTION SITE SWELLING [None]
  - INJECTION SITE ERYTHEMA [None]
